FAERS Safety Report 23636635 (Version 1)
Quarter: 2024Q1

REPORT INFORMATION
  Report Type: Spontaneous
  Country: US (occurrence: US)
  Receive Date: 20240315
  Receipt Date: 20240315
  Transmission Date: 20240410
  Serious: No
  Sender: FDA-Public Use
  Company Number: US-AMGEN-USASP2024049627

PATIENT
  Age: 3 Year
  Sex: Male

DRUGS (6)
  1. INFLIXIMAB [Suspect]
     Active Substance: INFLIXIMAB
     Indication: Acute graft versus host disease in liver
     Dosage: UNK
     Route: 065
  2. INFLIXIMAB [Suspect]
     Active Substance: INFLIXIMAB
     Indication: Acute graft versus host disease in intestine
  3. BEGELOMAB [Concomitant]
     Active Substance: BEGELOMAB
     Indication: Acute graft versus host disease in liver
     Dosage: 2.7 MILLIGRAM/SQ. METER, QD (ON DAYS 1, 2, 3, 4, 5, 10, 14, 17, 21, 24, AND 28, TOTALING 11 DOSES)
     Route: 042
  4. BEGELOMAB [Concomitant]
     Active Substance: BEGELOMAB
     Indication: Acute graft versus host disease in intestine
  5. TACROLIMUS [Concomitant]
     Active Substance: TACROLIMUS
     Indication: Acute graft versus host disease in liver
     Route: 065
  6. TACROLIMUS [Concomitant]
     Active Substance: TACROLIMUS
     Indication: Acute graft versus host disease in intestine

REACTIONS (3)
  - Venoocclusive disease [Unknown]
  - Unevaluable event [Unknown]
  - Off label use [Unknown]
